FAERS Safety Report 13834187 (Version 3)
Quarter: 2017Q3

REPORT INFORMATION
  Report Type: Spontaneous
  Country: US (occurrence: US)
  Receive Date: 20170804
  Receipt Date: 20170921
  Transmission Date: 20171127
  Serious: Yes (Hospitalization, Disabling, Other)
  Sender: FDA-Public Use
  Company Number: US-JNJFOC-20170801081

PATIENT
  Age: 15 Year
  Sex: Male
  Weight: 58 kg

DRUGS (5)
  1. REMICADE [Suspect]
     Active Substance: INFLIXIMAB
     Indication: CROHN^S DISEASE
     Dosage: RECEIVED 22 INFUSIONS.
     Route: 042
     Dates: start: 20140703, end: 20170629
  2. 6-MP [Suspect]
     Active Substance: MERCAPTOPURINE
     Indication: ILEAL STENOSIS
     Dosage: 50 TO 100 MG PER DAY
     Route: 048
     Dates: start: 20130605, end: 20140213
  3. 6-MP [Suspect]
     Active Substance: MERCAPTOPURINE
     Indication: CROHN^S DISEASE
     Dosage: 50 TO 100 MG PER DAY
     Route: 048
     Dates: start: 20130605, end: 20140213
  4. METHOTREXATE. [Suspect]
     Active Substance: METHOTREXATE
     Indication: CROHN^S DISEASE
     Route: 048
     Dates: start: 20140228, end: 20170629
  5. METHOTREXATE. [Suspect]
     Active Substance: METHOTREXATE
     Indication: CROHN^S DISEASE
     Route: 048
     Dates: end: 20170726

REACTIONS (1)
  - Hodgkin^s disease [Unknown]

NARRATIVE: CASE EVENT DATE: 20170720
